FAERS Safety Report 5092154-1 (Version None)
Quarter: 2006Q3

REPORT INFORMATION
  Report Type: 
  Country: None (occurrence: None)
  Receive Date: 20060825
  Receipt Date: 20060816
  Transmission Date: 20061208
  Serious: Yes (Death)
  Sender: FDA-Public Use
  Company Number: 228332

PATIENT
  Age: 66 Year
  Sex: Female
  Weight: 53.5 kg

DRUGS (4)
  1. RITUXAN [Suspect]
     Indication: NON-HODGKIN'S LYMPHOMA
     Dosage: 375 MG/M2, Q2W, INTRAVENOUS
     Route: 042
     Dates: start: 20060727, end: 20060727
  2. GEMCITABINE [Suspect]
     Indication: NON-HODGKIN'S LYMPHOMA
     Dosage: 1250 MG/M2, Q14D, INTRAVENOUS
     Route: 042
     Dates: start: 20060728, end: 20060728
  3. OXALIPLATIN [Suspect]
     Indication: NON-HODGKIN'S LYMPHOMA
     Dosage: 100 MG/M2, Q2W, INTRAVENOUS
     Route: 042
     Dates: start: 20060729, end: 20060729
  4. NEULASTA [Suspect]
     Indication: NON-HODGKIN'S LYMPHOMA
     Dosage: 6 MG, Q2W, SUBCUTANEOUS
     Route: 058
     Dates: start: 20060729, end: 20060729

REACTIONS (7)
  - BONE MARROW FAILURE [None]
  - DISEASE PROGRESSION [None]
  - HAEMATEMESIS [None]
  - LYMPHOMA [None]
  - NEUTROPENIA [None]
  - PLATELET COUNT DECREASED [None]
  - PYREXIA [None]
